FAERS Safety Report 7544502-8 (Version None)
Quarter: 2011Q2

REPORT INFORMATION
  Report Type: 
  Country: None (occurrence: None)
  Receive Date: 20110613
  Receipt Date: 20110606
  Transmission Date: 20111010
  Serious: Yes (Hospitalization)
  Sender: FDA-Public Use
  Company Number: US-MERCK-1106USA00689

PATIENT
  Age: 78 Year
  Sex: Female

DRUGS (5)
  1. FEXOFENADINE HYDROCHLORIDE [Concomitant]
     Route: 065
  2. SINGULAIR [Concomitant]
     Route: 065
  3. ACTOS [Concomitant]
     Route: 065
  4. ZOCOR [Suspect]
     Indication: BLOOD CHOLESTEROL
     Route: 048
     Dates: start: 20110501
  5. RAMIPRIL [Concomitant]
     Route: 065

REACTIONS (2)
  - CHEST PAIN [None]
  - MUSCLE SPASMS [None]
